FAERS Safety Report 10190528 (Version 5)
Quarter: 2020Q3

REPORT INFORMATION
  Report Type: Spontaneous
  Country: PT (occurrence: PT)
  Receive Date: 20140523
  Receipt Date: 20200702
  Transmission Date: 20201105
  Serious: Yes (Other)
  Sender: FDA-Public Use
  Company Number: PT-ROCHE-1406194

PATIENT
  Age: 59 Year
  Sex: Male

DRUGS (2)
  1. PAMIDRONIC ACID [Suspect]
     Active Substance: PAMIDRONIC ACID
     Indication: METASTASES TO BONE
     Route: 042
  2. IBANDRONIC ACID. [Suspect]
     Active Substance: IBANDRONIC ACID
     Indication: METASTASES TO BONE
     Route: 048

REACTIONS (5)
  - Jaw fracture [Recovered/Resolved]
  - Exposed bone in jaw [Unknown]
  - Pain in jaw [Recovered/Resolved]
  - Bone pain [Recovered/Resolved]
  - Osteonecrosis of jaw [Recovered/Resolved]

NARRATIVE: CASE EVENT DATE: 201011
